FAERS Safety Report 7302036-X (Version None)
Quarter: 2011Q1

REPORT INFORMATION
  Report Type: 
  Country: None (occurrence: None)
  Receive Date: 20110218
  Receipt Date: 20110211
  Transmission Date: 20110831
  Serious: Yes (Hospitalization, Disabling, Other)
  Sender: FDA-Public Use
  Company Number: FR-PFIZER INC-2011012682

PATIENT
  Age: 67 Year
  Sex: Male

DRUGS (6)
  1. TAHOR [Suspect]
     Indication: PROPHYLAXIS
  2. ASPIRIN [Concomitant]
     Indication: THROMBOSIS PROPHYLAXIS
     Dosage: 160 MG, 1X/DAY
     Route: 048
     Dates: start: 20070101
  3. TAHOR [Suspect]
     Indication: TYPE IIA HYPERLIPIDAEMIA
     Dosage: 40 MG, 1X/DAY
     Route: 048
     Dates: start: 20070101, end: 20101201
  4. TAHOR [Suspect]
     Indication: HYPERCHOLESTEROLAEMIA
  5. COVERSYL [Concomitant]
     Indication: HYPERTENSION
     Dosage: 2.5 MG, 1X/DAY
     Route: 048
     Dates: start: 20070101
  6. SECTRAL [Concomitant]
     Indication: PROPHYLAXIS
     Dosage: UNK
     Dates: start: 20070101

REACTIONS (4)
  - FALL [None]
  - TENDON RUPTURE [None]
  - LIGAMENT RUPTURE [None]
  - JOINT SPRAIN [None]
